FAERS Safety Report 25182709 (Version 1)
Quarter: 2025Q2

REPORT INFORMATION
  Report Type: Report from Study
  Country: US (occurrence: US)
  Receive Date: 20250410
  Receipt Date: 20250410
  Transmission Date: 20250716
  Serious: Yes (Other)
  Sender: TAKEDA
  Company Number: US-TAKEDA-2025TUS033281

PATIENT
  Age: 50 Year
  Sex: Female

DRUGS (3)
  1. LANADELUMAB [Suspect]
     Active Substance: LANADELUMAB
     Indication: Hereditary angioedema
     Dosage: 300 MILLIGRAM, Q2WEEKS
  2. LANADELUMAB [Suspect]
     Active Substance: LANADELUMAB
     Indication: Immune system disorder
  3. LANADELUMAB [Suspect]
     Active Substance: LANADELUMAB

REACTIONS (4)
  - Chest discomfort [Recovered/Resolved]
  - Heart rate increased [Unknown]
  - Dyspnoea [Unknown]
  - Palpitations [Recovered/Resolved]

NARRATIVE: CASE EVENT DATE: 20250324
